FAERS Safety Report 9854752 (Version 1)
Quarter: 2014Q1

REPORT INFORMATION
  Report Type: Spontaneous
  Country: US (occurrence: US)
  Receive Date: 20140130
  Receipt Date: 20140130
  Transmission Date: 20141002
  Serious: No
  Sender: FDA-Public Use
  Company Number: US-PFIZER INC-2014026362

PATIENT
  Age: 50 Year
  Sex: Female
  Weight: 56.69 kg

DRUGS (3)
  1. GABAPENTIN [Suspect]
     Indication: PROCEDURAL PAIN
     Dosage: UNK, EVERY SIX HOURS
     Dates: end: 2013
  2. ALEVE [Concomitant]
     Dosage: UNK
  3. ADVIL [Concomitant]
     Dosage: UNK

REACTIONS (1)
  - Abdominal discomfort [Unknown]
